FAERS Safety Report 17583858 (Version 1)
Quarter: 2020Q1

REPORT INFORMATION
  Report Type: Report from Study
  Country: IT (occurrence: IT)
  Receive Date: 20200326
  Receipt Date: 20200326
  Transmission Date: 20200409
  Serious: Yes (Hospitalization)
  Sender: FDA-Public Use
  Company Number: IT-TEVA-2020-IT-1210020

PATIENT
  Age: 66 Year
  Sex: Male

DRUGS (7)
  1. LANTUS [Concomitant]
     Active Substance: INSULIN GLARGINE
     Dosage: 1 DOSAGE FORMS
     Route: 048
  2. CLOPIDOGREL [Suspect]
     Active Substance: CLOPIDOGREL BISULFATE
     Indication: ATRIAL FIBRILLATION
     Dosage: 75 MG
     Route: 048
  3. ACETYLSALICYLIC ACID [Interacting]
     Active Substance: ASPIRIN
     Indication: HYPERTENSIVE HEART DISEASE
     Dosage: 100 MG
     Route: 048
  4. PANTOPRAZOLO AUROBINDO ITALIA 20 MG COMPRESSE GASTRORESISTENTI [Concomitant]
     Dosage: 1 DOSAGE FORMS
     Route: 048
  5. TAMSULOSIN DOC GENERICI 0,4 MG CAPSULE RIGIDE A RILASCIO MODIFICATO [Concomitant]
     Dosage: 1 DOSAGE FORMS
     Route: 048
  6. BISOPROLOLO TEVA 5 MG COMPRESSE [Concomitant]
     Active Substance: BISOPROLOL FUMARATE
     Dosage: 1 DOSAGE FORMS
     Route: 048
  7. CITALOPRAM ABC 40 MG/ML GOCCE ORALI, SOLUZIONE [Concomitant]
     Dosage: 1 DOSAGE FORMS
     Route: 048

REACTIONS (4)
  - Ascites [Not Recovered/Not Resolved]
  - Perirenal haematoma [Not Recovered/Not Resolved]
  - Drug interaction [Not Recovered/Not Resolved]
  - Subdural haemorrhage [Not Recovered/Not Resolved]

NARRATIVE: CASE EVENT DATE: 20191106
